FAERS Safety Report 5526262-5 (Version None)
Quarter: 2007Q4

REPORT INFORMATION
  Report Type: 
  Country: None (occurrence: None)
  Receive Date: 20071127
  Receipt Date: 20071120
  Transmission Date: 20080405
  Serious: Yes (Hospitalization)
  Sender: FDA-Public Use
  Company Number: BE-JNJFOC-20071107847

PATIENT
  Sex: Female
  Weight: 3.03 kg

DRUGS (3)
  1. HALDOL [Suspect]
     Indication: DRUG EXPOSURE DURING PREGNANCY
     Route: 048
  2. XANAX [Suspect]
     Indication: DRUG EXPOSURE DURING PREGNANCY
  3. DIPRIVAN [Suspect]
     Indication: PYLORIC STENOSIS

REACTIONS (2)
  - PYLORIC STENOSIS [None]
  - SOMNOLENCE [None]
